FAERS Safety Report 7631796-3 (Version None)
Quarter: 2011Q3

REPORT INFORMATION
  Report Type: 
  Country: None (occurrence: None)
  Receive Date: 20110725
  Receipt Date: 20110503
  Transmission Date: 20111222
  Serious: No
  Sender: FDA-Public Use
  Company Number: US-BRISTOL-MYERS SQUIBB COMPANY-15633530

PATIENT
  Age: 51 Year
  Sex: Male
  Weight: 71 kg

DRUGS (1)
  1. WARFARIN SODIUM [Suspect]
     Indication: DEEP VEIN THROMBOSIS
     Dosage: IN FEB-2011, 10 MG AND RECENTLY INCREASED TO 20 MG.

REACTIONS (1)
  - DRUG INEFFECTIVE [None]
